FAERS Safety Report 25048736 (Version 2)
Quarter: 2025Q2

REPORT INFORMATION
  Report Type: Report from Study
  Country: US (occurrence: US)
  Receive Date: 20250307
  Receipt Date: 20250424
  Transmission Date: 20250717
  Serious: No
  Sender: ACADIA PHARMACEUTICALS
  Company Number: US-ACADIA PHARMACEUTICALS INC.-ACA-2025-PIM-002117

PATIENT
  Sex: Female

DRUGS (1)
  1. NUPLAZID [Suspect]
     Active Substance: PIMAVANSERIN TARTRATE
     Indication: Bipolar disorder
     Dosage: 34 MILLIGRAM, QD
     Route: 048
     Dates: start: 20241221

REACTIONS (3)
  - Stress [Unknown]
  - Product dose omission issue [Unknown]
  - Product use in unapproved indication [Unknown]
